FAERS Safety Report 7264649-3 (Version None)
Quarter: 2011Q1

REPORT INFORMATION
  Report Type: 
  Country: None (occurrence: None)
  Receive Date: 20110119
  Receipt Date: 20110104
  Transmission Date: 20110831
  Serious: Yes (Other)
  Sender: FDA-Public Use
  Company Number: AUR-APL-2010-03185

PATIENT
  Age: 78 Year
  Sex: Male

DRUGS (1)
  1. METOPROLOL TARTRATE [Suspect]

REACTIONS (2)
  - GOUT [None]
  - CONDITION AGGRAVATED [None]
